FAERS Safety Report 6851049-0 (Version None)
Quarter: 2010Q3

REPORT INFORMATION
  Report Type: 
  Country: None (occurrence: None)
  Receive Date: 20100716
  Receipt Date: 20071025
  Transmission Date: 20110219
  Serious: No
  Sender: FDA-Public Use
  Company Number: US-PFIZER INC-2007090770

PATIENT
  Sex: Female
  Weight: 49.9 kg

DRUGS (6)
  1. CHANTIX [Suspect]
     Indication: SMOKING CESSATION THERAPY
     Route: 048
     Dates: start: 20071011
  2. SOTALOL [Concomitant]
     Indication: HYPERTENSION
     Route: 048
  3. LIPITOR [Concomitant]
     Route: 048
  4. ACETYLSALICYLIC ACID [Concomitant]
     Route: 048
  5. AVAPRO [Concomitant]
     Route: 048
  6. LEVOXYL [Concomitant]
     Route: 048

REACTIONS (2)
  - NAUSEA [None]
  - VOMITING [None]
